FAERS Safety Report 23740767 (Version 1)
Quarter: 2024Q2

REPORT INFORMATION
  Report Type: Other
  Country: FR (occurrence: FR)
  Receive Date: 20240415
  Receipt Date: 20240415
  Transmission Date: 20240716
  Serious: Yes (Hospitalization)
  Sender: FDA-Public Use
  Company Number: None

PATIENT

DRUGS (2)
  1. SERTRALINE [Suspect]
     Active Substance: SERTRALINE HYDROCHLORIDE
     Indication: Poisoning deliberate
     Dosage: 60 DOSAGE FORM
     Route: 048
     Dates: start: 20240319
  2. CITALOPRAM [Suspect]
     Active Substance: CITALOPRAM\CITALOPRAM HYDROBROMIDE
     Indication: Poisoning deliberate
     Dosage: 15 DOSAGE FORM
     Route: 048
     Dates: start: 20240319

REACTIONS (5)
  - Muscle rigidity [Recovering/Resolving]
  - Poisoning deliberate [Unknown]
  - Electrocardiogram QT prolonged [Recovering/Resolving]
  - Myoclonus [Recovering/Resolving]
  - Hyperreflexia [Recovering/Resolving]

NARRATIVE: CASE EVENT DATE: 20240319
